FAERS Safety Report 4897574-3 (Version None)
Quarter: 2006Q1

REPORT INFORMATION
  Report Type: 
  Country: None (occurrence: None)
  Receive Date: 20060130
  Receipt Date: 20060130
  Transmission Date: 20060701
  Serious: Yes (Disabling)
  Sender: FDA-Public Use
  Company Number: None

PATIENT
  Sex: Male
  Weight: 88.4514 kg

DRUGS (2)
  1. GOLYTELY [Suspect]
     Indication: COLONOSCOPY
     Dosage: 2 GALLONS PRIOR TO COLONOSCOPY
     Dates: start: 20040201
  2. GOLYTELY [Suspect]
     Indication: PREMEDICATION
     Dosage: 2 GALLONS PRIOR TO COLONOSCOPY
     Dates: start: 20040201

REACTIONS (2)
  - HEADACHE [None]
  - MEMORY IMPAIRMENT [None]
